FAERS Safety Report 8437244 (Version 6)
Quarter: 2013Q2

REPORT INFORMATION
  Report Type: Report from Study
  Country: DE (occurrence: DE)
  Receive Date: 20120302
  Receipt Date: 20130521
  Transmission Date: 20140414
  Serious: Yes (Hospitalization)
  Sender: FDA-Public Use
  Company Number: DE-JNJFOC-20120211778

PATIENT
  Age: 22 Year
  Sex: Male
  Weight: 61.2 kg

DRUGS (10)
  1. REMICADE [Suspect]
     Indication: CROHN^S DISEASE
     Route: 042
     Dates: start: 20070611
  2. REMICADE [Suspect]
     Indication: CROHN^S DISEASE
     Route: 042
     Dates: start: 20070308
  3. REMICADE [Suspect]
     Indication: CROHN^S DISEASE
     Route: 042
     Dates: end: 200707
  4. REMICADE [Suspect]
     Indication: CROHN^S DISEASE
     Route: 042
     Dates: start: 200704
  5. DECORTIN [Concomitant]
     Indication: CROHN^S DISEASE
  6. DECORTIN [Concomitant]
     Indication: CROHN^S DISEASE
  7. ALL OTHER THERAPEUTIC PRODUCTS [Concomitant]
     Indication: MALABSORPTION
     Dates: start: 201103
  8. IRON [Concomitant]
     Indication: ANAEMIA
     Dates: start: 201102, end: 201112
  9. ADALIMUMAB [Concomitant]
     Dates: start: 200902, end: 200904
  10. PLACEBO [Concomitant]
     Dates: start: 200902, end: 200904

REACTIONS (4)
  - Malabsorption [Recovered/Resolved]
  - Ileectomy [Unknown]
  - Anaphylactic reaction [Unknown]
  - Infusion related reaction [Unknown]
